FAERS Safety Report 17798735 (Version 1)
Quarter: 2020Q2

REPORT INFORMATION
  Report Type: Spontaneous
  Country: CN (occurrence: CN)
  Receive Date: 20200518
  Receipt Date: 20200518
  Transmission Date: 20200714
  Serious: Yes (Hospitalization)
  Sender: FDA-Public Use
  Company Number: CN-PFIZER INC-2020194494

PATIENT
  Age: 59 Year
  Sex: Male
  Weight: 50 kg

DRUGS (6)
  1. METHYLPREDNISOLONE. [Suspect]
     Active Substance: METHYLPREDNISOLONE
     Indication: VASCULITIS
     Dosage: 8.000 MG, 1X/DAY
     Route: 048
     Dates: start: 20191212, end: 20200209
  2. METHYLPREDNISOLONE. [Suspect]
     Active Substance: METHYLPREDNISOLONE
     Indication: IMMUNE SYSTEM DISORDER
  3. CELLCEPT [Suspect]
     Active Substance: MYCOPHENOLATE MOFETIL\MYCOPHENOLATE MOFETIL HYDROCHLORIDE
     Indication: VASCULITIS
     Dosage: 0.750 G, 2X/DAY
     Route: 048
     Dates: start: 20200210, end: 20200310
  4. CELLCEPT [Suspect]
     Active Substance: MYCOPHENOLATE MOFETIL\MYCOPHENOLATE MOFETIL HYDROCHLORIDE
     Indication: IMMUNE SYSTEM DISORDER
  5. PREDNISONE ACETATE [Suspect]
     Active Substance: PREDNISONE ACETATE
     Indication: GASTROINTESTINAL HAEMORRHAGE
     Dosage: 35.000 MG, 1X/DAY
     Route: 048
     Dates: start: 20200210, end: 20200314
  6. PREDNISONE ACETATE [Suspect]
     Active Substance: PREDNISONE ACETATE
     Indication: IMMUNE SYSTEM DISORDER

REACTIONS (5)
  - Cytomegalovirus infection [Recovering/Resolving]
  - Infection [Recovering/Resolving]
  - Pneumocystis jirovecii pneumonia [Recovering/Resolving]
  - Pyrexia [Recovering/Resolving]
  - Blood creatinine increased [Unknown]

NARRATIVE: CASE EVENT DATE: 202003
